FAERS Safety Report 8972812 (Version 2)
Quarter: 2013Q2

REPORT INFORMATION
  Report Type: Spontaneous
  Country: DE (occurrence: DE)
  Receive Date: 20121219
  Receipt Date: 20130603
  Transmission Date: 20140414
  Serious: Yes (Other)
  Sender: FDA-Public Use
  Company Number: DE-BAYER-2012-132748

PATIENT
  Sex: Female

DRUGS (2)
  1. CANESTEN CREAM [Suspect]
     Dosage: USED ONCE
  2. CANESTEN CREAM [Suspect]
     Dosage: UNK

REACTIONS (4)
  - Vaginal haemorrhage [None]
  - Abdominal pain upper [None]
  - Back pain [None]
  - Exposure during pregnancy [None]
